FAERS Safety Report 21051893 (Version 2)
Quarter: 2022Q3

REPORT INFORMATION
  Report Type: Report from Study
  Country: BR (occurrence: BR)
  Receive Date: 20220707
  Receipt Date: 20220708
  Transmission Date: 20221026
  Serious: Yes (Other)
  Sender: FDA-Public Use
  Company Number: BR-JNJFOC-20220706600

PATIENT
  Sex: Female
  Weight: 70 kg

DRUGS (2)
  1. JANSSEN COVID-19 VACCINE [Suspect]
     Active Substance: AD26.COV2.S
     Indication: Immunisation
     Route: 065
  2. INFLIXIMAB [Suspect]
     Active Substance: INFLIXIMAB
     Indication: Rheumatoid arthritis
     Dosage: PRESENTATION: VIAL-AMPOULE, 3 AMPOULES, WITHIN 8 WEEKS
     Route: 042
     Dates: start: 20220225

REACTIONS (2)
  - Vaccination failure [Unknown]
  - Suspected COVID-19 [Unknown]
